FAERS Safety Report 18433335 (Version 1)
Quarter: 2020Q4

REPORT INFORMATION
  Report Type: Spontaneous
  Country: US (occurrence: US)
  Receive Date: 20201027
  Receipt Date: 20201027
  Transmission Date: 20210114
  Serious: Yes (Other)
  Sender: FDA-Public Use
  Company Number: US-ELI_LILLY_AND_COMPANY-US202010007146

PATIENT
  Age: 19 Year
  Sex: Female

DRUGS (1)
  1. FORTEO [Suspect]
     Active Substance: TERIPARATIDE
     Indication: AUTOIMMUNE DISORDER
     Dosage: 20 UG, UNKNOWN
     Route: 058
     Dates: start: 201906, end: 202003

REACTIONS (4)
  - Off label use [Unknown]
  - Paranoia [Recovering/Resolving]
  - Ankle fracture [Recovered/Resolved]
  - Panic attack [Recovered/Resolved]

NARRATIVE: CASE EVENT DATE: 201910
